FAERS Safety Report 9266203 (Version 5)
Quarter: 2013Q3

REPORT INFORMATION
  Report Type: Report from Study
  Country: BR (occurrence: BR)
  Receive Date: 20130502
  Receipt Date: 20130830
  Transmission Date: 20140515
  Serious: Yes (Hospitalization, Other)
  Sender: FDA-Public Use
  Company Number: BR-ROCHE-1219730

PATIENT
  Sex: Male
  Weight: 89 kg

DRUGS (5)
  1. ACTEMRA [Suspect]
     Indication: RHEUMATOID ARTHRITIS
     Dosage: MOST RECENT DOSE ON 13/MAR/2013
     Route: 065
     Dates: start: 20110511
  2. NATRILIX [Concomitant]
     Indication: HYPERTENSION
     Route: 065
  3. ENALAPRIL MALEATE [Concomitant]
     Indication: HYPERTENSION
     Route: 065
  4. SELOZOK [Concomitant]
     Indication: HYPERTENSION
     Route: 065
  5. GABAPENTIN [Concomitant]
     Indication: RHEUMATOID ARTHRITIS
     Route: 065

REACTIONS (7)
  - Hypersensitivity [Recovered/Resolved]
  - Arthropathy [Not Recovered/Not Resolved]
  - Cholelithiasis [Not Recovered/Not Resolved]
  - Depression [Unknown]
  - Erysipelas [Recovered/Resolved]
  - Rheumatoid arthritis [Not Recovered/Not Resolved]
  - Lung infection [Recovered/Resolved]
